FAERS Safety Report 5916040-7 (Version None)
Quarter: 2008Q4

REPORT INFORMATION
  Report Type: 
  Country: None (occurrence: None)
  Receive Date: 20081009
  Receipt Date: 20081009
  Transmission Date: 20090506
  Serious: Yes (Hospitalization)
  Sender: FDA-Public Use
  Company Number: None

PATIENT
  Age: 85 Year
  Sex: Female

DRUGS (9)
  1. TRAMADOL HCL [Suspect]
     Dosage: 50 MG / TID-QID / PO / PRN PRIOR TO ADMISSION
     Route: 048
  2. AMBIEN [Concomitant]
  3. LEXAPRO [Concomitant]
  4. ARICEPT [Concomitant]
  5. LASIX [Concomitant]
  6. ADVAIR DISKUS 100/50 [Concomitant]
  7. NYSTATIN [Concomitant]
  8. ASPIRIN [Concomitant]
  9. ZYRTEC [Concomitant]

REACTIONS (2)
  - CONVULSION [None]
  - VOMITING [None]
